FAERS Safety Report 10501671 (Version 1)
Quarter: 2014Q4

REPORT INFORMATION
  Report Type: Spontaneous
  Country: US (occurrence: None)
  Receive Date: 20141006
  Receipt Date: 20141006
  Transmission Date: 20150528
  Serious: No
  Sender: FDA-Public Use
  Company Number: None

PATIENT
  Age: 33 Year
  Sex: Male
  Weight: 104.2 kg

DRUGS (3)
  1. VALPROIC ACID. [Suspect]
     Active Substance: VALPROIC ACID
     Route: 048
     Dates: start: 20140719, end: 20140728
  2. VALPROIC ACID. [Suspect]
     Active Substance: VALPROIC ACID
     Indication: MANIA
     Route: 048
     Dates: start: 20140714, end: 20140721
  3. VALPROIC ACID. [Suspect]
     Active Substance: VALPROIC ACID
     Indication: BIPOLAR DISORDER
     Route: 048
     Dates: start: 20140714, end: 20140721

REACTIONS (7)
  - Headache [None]
  - Tremor [None]
  - Dysphemia [None]
  - Extrapyramidal disorder [None]
  - Tardive dyskinesia [None]
  - Weight increased [None]
  - Dyskinesia [None]

NARRATIVE: CASE EVENT DATE: 20140725
